FAERS Safety Report 12540492 (Version 1)
Quarter: 2016Q3

REPORT INFORMATION
  Report Type: Report from Study
  Country: CH (occurrence: CH)
  Receive Date: 20160708
  Receipt Date: 20160708
  Transmission Date: 20161109
  Serious: Yes (Hospitalization)
  Sender: FDA-Public Use
  Company Number: CH-ABBVIE-16K-151-1670968-00

PATIENT
  Sex: Female

DRUGS (1)
  1. DUODOPA [Suspect]
     Active Substance: CARBIDOPA\LEVODOPA
     Indication: PARKINSON^S DISEASE
     Dosage: MORNING DOSE: 6.1 ML, CONTINOUS RATE: 3.6  ML/H, EXTRA DOSE: 1.5 ML, 1 KASETTE DAILY
     Route: 050
     Dates: start: 20120414, end: 20160701

REACTIONS (3)
  - Inflammation [Unknown]
  - Abdominal pain [Unknown]
  - Infection [Unknown]

NARRATIVE: CASE EVENT DATE: 2016
